FAERS Safety Report 20244439 (Version 1)
Quarter: 2021Q4

REPORT INFORMATION
  Report Type: Report from Study
  Country: US (occurrence: US)
  Receive Date: 20211229
  Receipt Date: 20211229
  Transmission Date: 20220304
  Serious: Yes (Death, Hospitalization)
  Sender: FDA-Public Use
  Company Number: US-BAUSCH-BL-2021-042325

PATIENT
  Age: 70 Year
  Sex: Male

DRUGS (3)
  1. XIFAXAN [Suspect]
     Active Substance: RIFAXIMIN
     Indication: Liver disorder
     Route: 048
     Dates: start: 2020
  2. XIFAXAN [Suspect]
     Active Substance: RIFAXIMIN
     Indication: Hepatic cirrhosis
  3. LACTULOSE [Concomitant]
     Active Substance: LACTULOSE
     Indication: Product used for unknown indication
     Route: 048

REACTIONS (7)
  - Pulmonary hypertension [Fatal]
  - End stage renal disease [Fatal]
  - Sleep apnoea syndrome [Fatal]
  - Chronic respiratory failure [Fatal]
  - Cardiac failure congestive [Fatal]
  - Liver disorder [Fatal]
  - Pyrexia [Unknown]

NARRATIVE: CASE EVENT DATE: 20210201
